FAERS Safety Report 13643471 (Version 1)
Quarter: 2017Q2

REPORT INFORMATION
  Report Type: Spontaneous
  Country: GB (occurrence: GB)
  Receive Date: 20170612
  Receipt Date: 20170612
  Transmission Date: 20170830
  Serious: Yes (Other)
  Sender: FDA-Public Use
  Company Number: GB-MYLANLABS-2017M1034162

PATIENT

DRUGS (17)
  1. MEBEVERINE HYDROCHLORIDE [Concomitant]
     Active Substance: MEBEVERINE HYDROCHLORIDE
     Dosage: 1 DF, TID
     Dates: start: 20170428
  2. PARACETAMOL [Concomitant]
     Active Substance: ACETAMINOPHEN
     Dosage: 4 TIMES/DAY.
     Dates: start: 20160503
  3. CHLORAMPHENICOL [Concomitant]
     Active Substance: CHLORAMPHENICOL
     Dosage: AS DIRECTED.
     Dates: start: 20170201
  4. LACRI-LUBE [Concomitant]
     Dosage: AT NIGHT.
     Dates: start: 20170213, end: 20170412
  5. VALACICLOVIR [Suspect]
     Active Substance: VALACYCLOVIR HYDROCHLORIDE
     Dosage: UNK
     Dates: start: 20170525
  6. HYDROCORTISONE. [Concomitant]
     Active Substance: HYDROCORTISONE
     Dosage: 1 DF, BID
     Route: 061
     Dates: start: 20160503
  7. BENDROFLUMETHIAZIDE [Concomitant]
     Active Substance: BENDROFLUMETHIAZIDE
     Dosage: MORNING.
     Dates: start: 20160503
  8. NEOMYCIN SULFATE. [Concomitant]
     Active Substance: NEOMYCIN SULFATE
     Dosage: APPLY AS DIRECTED.
     Route: 061
     Dates: start: 20170329, end: 20170330
  9. NITROFURANTOIN. [Concomitant]
     Active Substance: NITROFURANTOIN
     Dosage: 1 DF, QID
     Dates: start: 20170420, end: 20170427
  10. COCODAMOL [Concomitant]
     Active Substance: ACETAMINOPHEN\CODEINE PHOSPHATE
     Dosage: TAKE 1 OR 2 4 TIMES/DAY.
     Dates: start: 20170303, end: 20170329
  11. LYRICA [Concomitant]
     Active Substance: PREGABALIN
     Dosage: 1 DF, TID
     Dates: start: 20170320, end: 20170407
  12. TRAVOPROST. [Concomitant]
     Active Substance: TRAVOPROST
     Dosage: EACH EYE.
     Route: 047
     Dates: start: 20160503
  13. TRIMETHOPRIM. [Concomitant]
     Active Substance: TRIMETHOPRIM
     Dosage: 20 ML, BID
     Dates: start: 20170515, end: 20170522
  14. CANDESARTAN. [Concomitant]
     Active Substance: CANDESARTAN
     Dosage: 1 DF, QD
     Dates: start: 20160503
  15. MACROGOL [Concomitant]
     Active Substance: POLYETHYLENE GLYCOLS
     Dosage: AS DIRECTED BY YOUR DOCTOR.
     Dates: start: 20170329
  16. CARBOMER [Concomitant]
     Active Substance: CARBOMER
     Dosage: 3-4 TIMES/DAY.
     Dates: start: 20170327
  17. DICLOFENAC DIETHYLAMMONIUM [Concomitant]
     Dosage: 1 DF, BID
     Route: 061
     Dates: start: 20160503

REACTIONS (2)
  - Nausea [Recovering/Resolving]
  - Lip swelling [Recovering/Resolving]

NARRATIVE: CASE EVENT DATE: 20170525
